FAERS Safety Report 6565857-7 (Version None)
Quarter: 2010Q1

REPORT INFORMATION
  Report Type: 
  Country: None (occurrence: None)
  Receive Date: 20100126
  Receipt Date: 20100118
  Transmission Date: 20100710
  Serious: Yes (Other)
  Sender: FDA-Public Use
  Company Number: 2010SP003600

PATIENT
  Age: 27 Year
  Sex: Female

DRUGS (2)
  1. MERCILON (DESOGESTREL/ETHINYLESTRADIOL /00570801/) [Suspect]
     Indication: CONTRACEPTION
     Dosage: PO
     Route: 048
     Dates: start: 20020101, end: 20100114
  2. MERCILON (DESOGESTREL/ETHINYLESTRADIOL /00570801/) [Suspect]
     Indication: CONTRACEPTION
     Dosage: PO
     Route: 048
     Dates: start: 20100117

REACTIONS (6)
  - APPENDICITIS [None]
  - DRUG DOSE OMISSION [None]
  - INAPPROPRIATE SCHEDULE OF DRUG ADMINISTRATION [None]
  - TREATMENT NONCOMPLIANCE [None]
  - VAGINAL HAEMORRHAGE [None]
  - VOMITING [None]
